FAERS Safety Report 18414320 (Version 1)
Quarter: 2020Q4

REPORT INFORMATION
  Report Type: Spontaneous
  Country: CZ (occurrence: CZ)
  Receive Date: 20201022
  Receipt Date: 20201022
  Transmission Date: 20210114
  Serious: Yes (Life-Threatening, Other)
  Sender: FDA-Public Use
  Company Number: CZ-ACCORD-205888

PATIENT
  Age: 59 Year
  Sex: Male
  Weight: 88 kg

DRUGS (1)
  1. CARBOPLATIN ACCORD [Suspect]
     Active Substance: CARBOPLATIN
     Indication: TONSIL CANCER
     Dosage: AUC 4 EVERY 21 DAYS
     Route: 042
     Dates: start: 20201012, end: 20201012

REACTIONS (4)
  - Oedema peripheral [Recovered/Resolved]
  - Drug hypersensitivity [Recovered/Resolved]
  - Off label use [Unknown]
  - Tongue oedema [Recovered/Resolved]

NARRATIVE: CASE EVENT DATE: 20201012
